FAERS Safety Report 13285452 (Version 1)
Quarter: 2017Q1

REPORT INFORMATION
  Report Type: Spontaneous
  Country: US (occurrence: US)
  Receive Date: 20170302
  Receipt Date: 20170302
  Transmission Date: 20170428
  Serious: Yes (Other)
  Sender: FDA-Public Use
  Company Number: None

PATIENT
  Age: 61 Year
  Sex: Female
  Weight: 53.1 kg

DRUGS (4)
  1. SIMVASTATIN 10 MG. [Suspect]
     Active Substance: SIMVASTATIN
     Indication: ISCHAEMIC HEART DISEASE PROPHYLAXIS
     Dosage: ?          QUANTITY:30 TABLET(S);?
     Route: 048
     Dates: start: 20170201, end: 20170301
  2. ASPIRIN. [Concomitant]
     Active Substance: ASPIRIN
  3. VAGIFEM [Concomitant]
     Active Substance: ESTRADIOL
  4. VIVELLE-DOT [Concomitant]
     Active Substance: ESTRADIOL

REACTIONS (2)
  - Screaming [None]
  - Nightmare [None]

NARRATIVE: CASE EVENT DATE: 20170201
